FAERS Safety Report 4617704-8 (Version None)
Quarter: 2005Q1

REPORT INFORMATION
  Report Type: 
  Country: None (occurrence: None)
  Receive Date: 20050324
  Receipt Date: 20050228
  Transmission Date: 20050727
  Serious: Yes (Hospitalization)
  Sender: FDA-Public Use
  Company Number: FR-ROCHE-396852

PATIENT
  Age: 46 Year
  Sex: Female

DRUGS (5)
  1. ROACCUTANE [Suspect]
     Indication: DRUG USE FOR UNKNOWN INDICATION
     Route: 048
     Dates: start: 20041204, end: 20041231
  2. ALEPSAL [Suspect]
     Indication: DRUG USE FOR UNKNOWN INDICATION
     Route: 048
     Dates: end: 20050101
  3. DEPAKENE [Suspect]
     Indication: DRUG USE FOR UNKNOWN INDICATION
     Route: 048
  4. FUROSEMIDE [Suspect]
     Indication: DRUG USE FOR UNKNOWN INDICATION
     Route: 048
     Dates: end: 20050101
  5. AUGMENTIN '125' [Suspect]
     Route: 048
     Dates: start: 20041228, end: 20050110

REACTIONS (7)
  - HYPOTHERMIA [None]
  - MUCOSAL HAEMORRHAGE [None]
  - MUCOSAL ULCERATION [None]
  - PANCYTOPENIA [None]
  - PNEUMONIA [None]
  - RECTAL ULCER HAEMORRHAGE [None]
  - SEPTIC SHOCK [None]
